FAERS Safety Report 11091508 (Version 1)
Quarter: 2015Q2

REPORT INFORMATION
  Report Type: Spontaneous
  Country: US (occurrence: None)
  Receive Date: 20150504
  Receipt Date: 20150504
  Transmission Date: 20150821
  Serious: No
  Sender: FDA-Public Use
  Company Number: None

PATIENT
  Age: 61 Year
  Sex: Male
  Weight: 72.58 kg

DRUGS (3)
  1. CITALOPRAM HYDROBROMIDE. [Suspect]
     Active Substance: CITALOPRAM HYDROBROMIDE
     Dosage: 2 TABS PER DAY  ONCE DAILY  TAKEN BY MOUTH
     Route: 048
  2. CITALOPRAM HYDROBROMIDE. [Suspect]
     Active Substance: CITALOPRAM HYDROBROMIDE
     Indication: DISTURBANCE IN ATTENTION
     Dosage: 2 TABS PER DAY  ONCE DAILY  TAKEN BY MOUTH
     Route: 048
  3. CITALOPRAM HYDROBROMIDE. [Suspect]
     Active Substance: CITALOPRAM HYDROBROMIDE
     Indication: FEELING ABNORMAL
     Dosage: 2 TABS PER DAY  ONCE DAILY  TAKEN BY MOUTH
     Route: 048

REACTIONS (7)
  - Drug effect decreased [None]
  - Anxiety [None]
  - Nausea [None]
  - Disturbance in attention [None]
  - Product substitution issue [None]
  - Product quality issue [None]
  - Feeling abnormal [None]

NARRATIVE: CASE EVENT DATE: 20150409
